FAERS Safety Report 18762108 (Version 1)
Quarter: 2021Q1

REPORT INFORMATION
  Report Type: Spontaneous
  Country: US (occurrence: US)
  Receive Date: 20210119
  Receipt Date: 20210119
  Transmission Date: 20210419
  Serious: Yes (Hospitalization)
  Sender: FDA-Public Use
  Company Number: None

PATIENT
  Age: 73 Year
  Sex: Female
  Weight: 78.7 kg

DRUGS (18)
  1. TOPROL XL [Concomitant]
     Active Substance: METOPROLOL SUCCINATE
  2. LEXAPRO [Concomitant]
     Active Substance: ESCITALOPRAM OXALATE
  3. CAPECITABINE. [Suspect]
     Active Substance: CAPECITABINE
     Indication: RECTAL CANCER
     Dosage: ?          OTHER FREQUENCY:BID X14D Q 21D;?
     Route: 048
     Dates: start: 20201015, end: 20201117
  4. SYNTHROID [Concomitant]
     Active Substance: LEVOTHYROXINE SODIUM
  5. OXALIPLATIN 130 MG/M SQUARED IV OVER 2 HOURS ON DAY 1. [Concomitant]
     Dates: start: 20201015, end: 20201106
  6. LOMOTIL [Concomitant]
     Active Substance: ATROPINE SULFATE\DIPHENOXYLATE HYDROCHLORIDE
  7. MULTIVITAMIN [Concomitant]
     Active Substance: VITAMINS
  8. OXALIPLATIN. [Suspect]
     Active Substance: OXALIPLATIN
  9. XANAX [Concomitant]
     Active Substance: ALPRAZOLAM
  10. DOCUSATE/SENNA [Concomitant]
     Active Substance: DOCUSATE SODIUM\SENNA LEAF
  11. HYDROCHLOROTHIAZIDE. [Concomitant]
     Active Substance: HYDROCHLOROTHIAZIDE
  12. LISINOPRIL. [Concomitant]
     Active Substance: LISINOPRIL
  13. TRAMADOL. [Concomitant]
     Active Substance: TRAMADOL
  14. TYLENOL [Concomitant]
     Active Substance: ACETAMINOPHEN
  15. AZO URINARY PAIN RELIEF [Concomitant]
     Active Substance: PHENAZOPYRIDINE HYDROCHLORIDE
  16. CRANBERRY. [Concomitant]
     Active Substance: CRANBERRY
  17. CAPECITABINE. [Suspect]
     Active Substance: CAPECITABINE
     Indication: RECTAL CANCER
     Dosage: ?          OTHER FREQUENCY:BID X14D Q 21D;?
     Route: 048
     Dates: start: 20201015, end: 20201117
  18. IMODIUM AD [Concomitant]
     Active Substance: LOPERAMIDE HYDROCHLORIDE

REACTIONS (5)
  - Diarrhoea [None]
  - Pulmonary thrombosis [None]
  - Hypokalaemia [None]
  - Gait disturbance [None]
  - Thrombocytopenia [None]

NARRATIVE: CASE EVENT DATE: 20201117
